FAERS Safety Report 26116237 (Version 1)
Quarter: 2025Q4

REPORT INFORMATION
  Report Type: Spontaneous
  Country: EU (occurrence: EU)
  Receive Date: 20251203
  Receipt Date: 20251203
  Transmission Date: 20260118
  Serious: Yes (Other)
  Sender: ACCORD
  Company Number: None

PATIENT

DRUGS (1)
  1. PACLITAXEL [Suspect]
     Active Substance: PACLITAXEL
     Indication: Product used for unknown indication
     Dosage: MOTHER TOOK AT DOSE: 294.3 UNIT UNKNOWN

REACTIONS (2)
  - Bradycardia foetal [Recovering/Resolving]
  - Foetal exposure during pregnancy [Unknown]
